FAERS Safety Report 7370622-7 (Version None)
Quarter: 2011Q1

REPORT INFORMATION
  Report Type: 
  Country: None (occurrence: None)
  Receive Date: 20110323
  Receipt Date: 20110317
  Transmission Date: 20110831
  Serious: Yes (Hospitalization)
  Sender: FDA-Public Use
  Company Number: US-RB-018284-10

PATIENT
  Age: 59 Year
  Sex: Female

DRUGS (10)
  1. LISINOPRIL [Concomitant]
     Indication: HYPERTENSION
     Dosage: DOSING INFORMATION UNKNOWN
     Route: 065
  2. SUBOXONE [Suspect]
     Indication: DRUG DEPENDENCE
     Dosage: SUBLINGUAL FILM
     Route: 065
     Dates: start: 20100101, end: 20110314
  3. PLAVIX [Concomitant]
     Indication: CARDIAC DISORDER
     Dosage: DOSING INFORMATION UNKNOWN
     Route: 065
  4. ZETIA [Concomitant]
     Indication: BLOOD CHOLESTEROL INCREASED
     Dosage: DOSING INFORMATION UNKNOWN
     Route: 065
  5. LEVEMIR [Concomitant]
     Indication: DIABETES MELLITUS
     Dosage: 35 UNITS AT NIGHT
     Route: 065
  6. ASPIRIN [Concomitant]
     Indication: CARDIAC DISORDER
     Dosage: 81 MG
     Route: 065
  7. LASIX [Concomitant]
     Indication: FLUID RETENTION
     Dosage: DOSING INFORMATION UNKNOWN
     Route: 065
  8. SINGULAIR [Concomitant]
     Indication: DYSPNOEA
     Dosage: DOSING INFORMATION UNKNOWN
     Route: 065
  9. RANEXA [Concomitant]
     Indication: CARDIAC DISORDER
     Dosage: DOSING INFORMATION UNKNOWN
     Route: 065
  10. COREG [Concomitant]
     Indication: CARDIAC DISORDER
     Dosage: DOSING INFORMATION UNKNOWN
     Route: 065

REACTIONS (7)
  - CHEST PAIN [None]
  - TOBACCO USER [None]
  - WEIGHT INCREASED [None]
  - NICOTINE DEPENDENCE [None]
  - DRUG EFFECT DECREASED [None]
  - ANXIETY [None]
  - CARDIAC FAILURE CONGESTIVE [None]
